FAERS Safety Report 10347923 (Version 1)
Quarter: 2014Q3

REPORT INFORMATION
  Report Type: Spontaneous
  Country: JP (occurrence: JP)
  Receive Date: 20140729
  Receipt Date: 20140729
  Transmission Date: 20150326
  Serious: No
  Sender: FDA-Public Use
  Company Number: PHHY2013JP159053

PATIENT
  Sex: Male

DRUGS (4)
  1. GLIVEC [Suspect]
     Active Substance: IMATINIB MESYLATE
     Dosage: 100 MG
  2. GLIVEC [Suspect]
     Active Substance: IMATINIB MESYLATE
     Dosage: 300 MG
  3. TASIGNA [Suspect]
     Active Substance: NILOTINIB
     Dosage: 150 MG
  4. DASATINIB [Suspect]
     Active Substance: DASATINIB

REACTIONS (1)
  - Oedema [Unknown]
